FAERS Safety Report 4358991-3 (Version None)
Quarter: 2004Q2

REPORT INFORMATION
  Report Type: 
  Country: None (occurrence: None)
  Receive Date: 20040512
  Receipt Date: 20040427
  Transmission Date: 20050107
  Serious: Yes (Life-Threatening, Hospitalization)
  Sender: FDA-Public Use
  Company Number: A03200401312

PATIENT
  Age: 55 Year
  Sex: Female

DRUGS (2)
  1. ELOXATIN [Suspect]
     Dosage: INTRAVENOUS NOS
     Route: 042
  2. LEUCOVORIN CALCIUM [Concomitant]

REACTIONS (6)
  - CARDIO-RESPIRATORY ARREST [None]
  - COMA [None]
  - DYSPNOEA [None]
  - FEELING HOT [None]
  - PALLOR [None]
  - VOMITING [None]
